FAERS Safety Report 23258711 (Version 2)
Quarter: 2023Q4

REPORT INFORMATION
  Report Type: Spontaneous
  Country: IT (occurrence: IT)
  Receive Date: 20231204
  Receipt Date: 20231215
  Transmission Date: 20240110
  Serious: Yes (Life-Threatening, Hospitalization, Other)
  Sender: FDA-Public Use
  Company Number: IT-MLMSERVICE-20231106-4635903-1

PATIENT
  Age: 60 Year
  Sex: Male

DRUGS (3)
  1. METHOTREXATE [Suspect]
     Active Substance: METHOTREXATE
     Indication: Product used for unknown indication
     Dosage: UNK (HIGH-DOSE)
     Route: 065
  2. LEVOLEUCOVORIN [Suspect]
     Active Substance: LEVOLEUCOVORIN
     Indication: Toxicity to various agents
     Dosage: 1 GRAM, QD
     Route: 065
  3. GLUCARPIDASE [Suspect]
     Active Substance: GLUCARPIDASE
     Indication: Toxicity to various agents
     Dosage: UNK
     Route: 065

REACTIONS (18)
  - Genital erosion [Recovered/Resolved]
  - Skin lesion [Recovered/Resolved]
  - Oral mucosa erosion [Recovered/Resolved]
  - Toxicity to various agents [Recovering/Resolving]
  - Myelosuppression [Recovered/Resolved]
  - Pancytopenia [Recovered/Resolved]
  - Renal failure [Recovering/Resolving]
  - Skin exfoliation [Recovered/Resolved]
  - Incorrect dose administered [Unknown]
  - Prescription drug used without a prescription [Unknown]
  - Intentional product misuse [Unknown]
  - Neutropenia [Recovering/Resolving]
  - Anaemia [Recovering/Resolving]
  - Thrombocytopenia [Recovering/Resolving]
  - Renal impairment [Recovering/Resolving]
  - Drug ineffective [Unknown]
  - Off label use [Unknown]
  - Rash erythematous [Recovering/Resolving]
